FAERS Safety Report 5572201-0 (Version None)
Quarter: 2007Q4

REPORT INFORMATION
  Report Type: 
  Country: None (occurrence: None)
  Receive Date: 20071221
  Receipt Date: 20071212
  Transmission Date: 20080405
  Serious: Yes (Other)
  Sender: FDA-Public Use
  Company Number: US-PFIZER INC-2007104978

PATIENT
  Sex: Female
  Weight: 46.7 kg

DRUGS (11)
  1. NEURONTIN [Suspect]
     Indication: CONVULSION
  2. CHANTIX [Suspect]
     Indication: SMOKING CESSATION THERAPY
     Dates: start: 20070801, end: 20070101
  3. GABAPENTIN [Suspect]
     Indication: CONVULSION
  4. PREVACID [Concomitant]
  5. CREON [Concomitant]
  6. ROBAXIN [Concomitant]
  7. LEXAPRO [Concomitant]
  8. POTASSIUM CHLORIDE [Concomitant]
  9. OXYCONTIN [Concomitant]
  10. VICOPROFEN [Concomitant]
  11. XANAX [Concomitant]

REACTIONS (13)
  - ABDOMINAL PAIN UPPER [None]
  - ACTIVITIES OF DAILY LIVING IMPAIRED [None]
  - BACK INJURY [None]
  - CONFUSIONAL STATE [None]
  - CONVULSION [None]
  - EPISTAXIS [None]
  - FACE INJURY [None]
  - FEELING ABNORMAL [None]
  - INJURY [None]
  - JOINT INJURY [None]
  - MUSCLE INJURY [None]
  - PANCREATITIS CHRONIC [None]
  - PERIORBITAL HAEMATOMA [None]
